FAERS Safety Report 9798736 (Version 1)
Quarter: 2014Q1

REPORT INFORMATION
  Report Type: Spontaneous
  Country: US (occurrence: US)
  Receive Date: 20140106
  Receipt Date: 20140106
  Transmission Date: 20141002
  Serious: No
  Sender: FDA-Public Use
  Company Number: US-GILEAD-2010-0029934

PATIENT
  Age: 11 Year
  Sex: Female

DRUGS (9)
  1. LETAIRIS [Suspect]
     Indication: COR PULMONALE
     Route: 048
     Dates: start: 20100324
  2. FUROSEMIDE [Concomitant]
  3. LANOXIN [Concomitant]
  4. ZANTAC [Concomitant]
  5. PLAVIX [Concomitant]
  6. ASPIRIN [Concomitant]
  7. REMODULIN [Concomitant]
  8. GABAPENTIN [Concomitant]
  9. BECLOMETHASONE [Concomitant]

REACTIONS (2)
  - Oxygen saturation decreased [Not Recovered/Not Resolved]
  - Drug ineffective for unapproved indication [Not Recovered/Not Resolved]
